FAERS Safety Report 24025433 (Version 1)
Quarter: 2024Q2

REPORT INFORMATION
  Report Type: Report from Study
  Country: CN (occurrence: CN)
  Receive Date: 20240628
  Receipt Date: 20240628
  Transmission Date: 20240716
  Serious: No
  Sender: FDA-Public Use
  Company Number: CN-ROCHE-3241385

PATIENT
  Age: 68 Year
  Sex: Female

DRUGS (1)
  1. ALECENSA [Suspect]
     Active Substance: ALECTINIB HYDROCHLORIDE
     Indication: Product used for unknown indication
     Dosage: 224 CAPSULES PER BOX
     Route: 048
     Dates: start: 20211112

REACTIONS (6)
  - Rash [Recovering/Resolving]
  - Carbohydrate antigen 125 increased [Recovering/Resolving]
  - Liver function test increased [Recovering/Resolving]
  - Blood bilirubin increased [Recovering/Resolving]
  - Breath odour [Recovering/Resolving]
  - Dysgeusia [Recovering/Resolving]
